FAERS Safety Report 9148308 (Version 1)
Quarter: 2013Q1

REPORT INFORMATION
  Report Type: Spontaneous
  Country: US (occurrence: US)
  Receive Date: 20130308
  Receipt Date: 20130308
  Transmission Date: 20140127
  Serious: Yes (Other)
  Sender: FDA-Public Use
  Company Number: US-TEVA-390067USA

PATIENT
  Age: 81 Year
  Sex: Female

DRUGS (3)
  1. METHOTREXATE [Suspect]
     Indication: RHEUMATOID ARTHRITIS
     Dosage: 1.4286 MILLIGRAM DAILY;
     Route: 065
  2. FLUOROURACIL [Suspect]
     Indication: ACTINIC KERATOSIS
     Route: 061
  3. PREDNISONE [Suspect]
     Indication: RHEUMATOID ARTHRITIS
     Dosage: 2.5 MILLIGRAM DAILY;
     Route: 065

REACTIONS (3)
  - Superinfection bacterial [Unknown]
  - Eczema herpeticum [Unknown]
  - Dermatitis contact [Unknown]
